FAERS Safety Report 17284628 (Version 17)
Quarter: 2025Q1

REPORT INFORMATION
  Report Type: Report from Study
  Country: US (occurrence: US)
  Receive Date: 20200117
  Receipt Date: 20250211
  Transmission Date: 20250408
  Serious: Yes (Hospitalization, Other)
  Sender: TAKEDA
  Company Number: US-SHIRE-US202001092

PATIENT
  Age: 2 Year
  Sex: Male

DRUGS (5)
  1. VELAGLUCERASE ALFA [Suspect]
     Active Substance: VELAGLUCERASE ALFA
     Indication: Gaucher^s disease
     Dosage: UNK, 1/WEEK
     Dates: start: 20180802
  2. VELAGLUCERASE ALFA [Suspect]
     Active Substance: VELAGLUCERASE ALFA
     Dosage: 2 DOSAGE FORM, 1/WEEK
  3. VELAGLUCERASE ALFA [Suspect]
     Active Substance: VELAGLUCERASE ALFA
     Dosage: 3 DOSAGE FORM, 1/WEEK
  4. VELAGLUCERASE ALFA [Suspect]
     Active Substance: VELAGLUCERASE ALFA
     Dosage: UNK UNK, Q2WEEKS
  5. VELAGLUCERASE ALFA [Suspect]
     Active Substance: VELAGLUCERASE ALFA
     Dosage: UNK UNK, 1/WEEK

REACTIONS (14)
  - Atypical pneumonia [Not Recovered/Not Resolved]
  - Enterovirus infection [Recovered/Resolved]
  - COVID-19 [Not Recovered/Not Resolved]
  - Pneumonia aspiration [Not Recovered/Not Resolved]
  - Nasopharyngitis [Not Recovered/Not Resolved]
  - Respiratory tract infection bacterial [Recovering/Resolving]
  - Respiratory tract infection viral [Not Recovered/Not Resolved]
  - Seizure [Recovering/Resolving]
  - Respiratory disorder [Recovering/Resolving]
  - Rhinovirus infection [Recovering/Resolving]
  - Vascular device infection [Recovering/Resolving]
  - Illness [Unknown]
  - Incorrect drug administration rate [Unknown]
  - Weight increased [Recovered/Resolved]

NARRATIVE: CASE EVENT DATE: 20200101
